FAERS Safety Report 10914345 (Version 1)
Quarter: 2015Q1

REPORT INFORMATION
  Report Type: Spontaneous
  Country: US (occurrence: US)
  Receive Date: 20150313
  Receipt Date: 20150313
  Transmission Date: 20150721
  Serious: No
  Sender: FDA-Public Use
  Company Number: US-GLAXOSMITHKLINE-US2015023041

PATIENT

DRUGS (2)
  1. TANZEUM [Suspect]
     Active Substance: ALBIGLUTIDE
     Indication: PRODUCT USED FOR UNKNOWN INDICATION
     Dosage: 30 MG, WE
  2. METFORMIN [Concomitant]
     Active Substance: METFORMIN HYDROCHLORIDE

REACTIONS (2)
  - Injection site erythema [Recovering/Resolving]
  - Injection site swelling [Recovering/Resolving]
